FAERS Safety Report 9162873 (Version 1)
Quarter: 2013Q1

REPORT INFORMATION
  Report Type: Spontaneous
  Country: US (occurrence: US)
  Receive Date: 20130314
  Receipt Date: 20130314
  Transmission Date: 20140127
  Serious: No
  Sender: FDA-Public Use
  Company Number: US-B.I. PHARMACEUTICALS,INC./RIDGEFIELD-2013-BI-06610BP

PATIENT
  Age: 65 None
  Sex: Female
  Weight: 68 kg

DRUGS (4)
  1. COMBIVENT [Suspect]
     Indication: BRONCHITIS CHRONIC
     Route: 055
     Dates: start: 201303
  2. COMBIVENT [Suspect]
     Indication: BRONCHITIS CHRONIC
     Route: 055
     Dates: start: 2008, end: 201303
  3. FOSAMAX [Concomitant]
     Route: 048
  4. ZYRTEC [Concomitant]
     Route: 048

REACTIONS (3)
  - Retching [Recovered/Resolved]
  - Pulmonary function test abnormal [Not Recovered/Not Resolved]
  - Product quality issue [Recovered/Resolved]
